FAERS Safety Report 21701572 (Version 1)
Quarter: 2022Q4

REPORT INFORMATION
  Report Type: Spontaneous
  Country: BR (occurrence: BR)
  Receive Date: 20221208
  Receipt Date: 20221208
  Transmission Date: 20230112
  Serious: Yes (Death)
  Sender: FDA-Public Use
  Company Number: BR-TEVA BRAZIL-2022-BR-2833162

PATIENT
  Sex: Female

DRUGS (6)
  1. FENTANYL [Suspect]
     Active Substance: FENTANYL
     Indication: Substance abuse
     Route: 065
  2. FENTANYL [Suspect]
     Active Substance: FENTANYL
     Indication: Suicide attempt
  3. MIDAZOLAM [Suspect]
     Active Substance: MIDAZOLAM
     Indication: Substance abuse
     Route: 065
  4. MIDAZOLAM [Suspect]
     Active Substance: MIDAZOLAM
     Indication: Suicide attempt
  5. PROPOFOL [Suspect]
     Active Substance: PROPOFOL
     Indication: Substance abuse
     Route: 065
  6. PROPOFOL [Suspect]
     Active Substance: PROPOFOL
     Indication: Suicide attempt

REACTIONS (3)
  - Completed suicide [Fatal]
  - Drug abuse [Fatal]
  - Cardio-respiratory arrest [Fatal]
